FAERS Safety Report 6732765-8 (Version None)
Quarter: 2010Q2

REPORT INFORMATION
  Report Type: 
  Country: None (occurrence: None)
  Receive Date: 20100519
  Receipt Date: 20100507
  Transmission Date: 20101027
  Serious: Yes (Hospitalization)
  Sender: FDA-Public Use
  Company Number: US-CELGENEUS-163-C5013-10031865

PATIENT
  Sex: Male
  Weight: 92.162 kg

DRUGS (7)
  1. CC-5013 [Suspect]
     Route: 048
     Dates: start: 20100311, end: 20100325
  2. ASPIRIN [Concomitant]
     Indication: THROMBOSIS PROPHYLAXIS
     Route: 048
     Dates: start: 20001111
  3. HYDROCHLOROTHIAZIDE [Concomitant]
     Indication: HYPERTENSION
     Route: 048
     Dates: start: 19781111
  4. LOTREL [Concomitant]
     Indication: HYPERTENSION
     Route: 048
     Dates: start: 20001111
  5. TRICOR [Concomitant]
     Route: 048
     Dates: start: 20081104
  6. CIPRO [Concomitant]
     Indication: DRUG USE FOR UNKNOWN INDICATION
     Route: 051
  7. PAIN MEDICATION [Concomitant]
     Indication: PAIN
     Route: 048

REACTIONS (7)
  - BENIGN PROSTATIC HYPERPLASIA [None]
  - HYPERTENSION [None]
  - LYMPHOCYTE COUNT INCREASED [None]
  - RENAL CYST [None]
  - SPLENOMEGALY [None]
  - THROMBOCYTOPENIA [None]
  - TUMOUR FLARE [None]
